FAERS Safety Report 9031189 (Version 2)
Quarter: 2013Q1

REPORT INFORMATION
  Report Type: Spontaneous
  Country: US (occurrence: US)
  Receive Date: 20130123
  Receipt Date: 20130130
  Transmission Date: 20140127
  Serious: Yes (Other)
  Sender: FDA-Public Use
  Company Number: CHPA2013US001398

PATIENT
  Age: 83 Year
  Sex: Female

DRUGS (2)
  1. VOLTAREN GEL [Suspect]
     Indication: TENDONITIS
     Dosage: UNK, QID
     Route: 061
  2. VICODIN [Concomitant]
     Indication: PAIN
     Dosage: UNK, QD
     Route: 048

REACTIONS (3)
  - Cellulitis [Not Recovered/Not Resolved]
  - Off label use [Unknown]
  - Drug administered at inappropriate site [Unknown]
